FAERS Safety Report 5144304-6 (Version None)
Quarter: 2006Q4

REPORT INFORMATION
  Report Type: 
  Country: None (occurrence: None)
  Receive Date: 20061030
  Receipt Date: 20061023
  Transmission Date: 20070319
  Serious: Yes (Hospitalization)
  Sender: FDA-Public Use
  Company Number: 163-21880-06081022

PATIENT
  Age: 60 Year
  Sex: Male

DRUGS (3)
  1. REVLIMID [Suspect]
     Indication: MULTIPLE MYELOMA
     Dosage: SEE IMAGE
     Route: 048
     Dates: start: 20060725
  2. DEXAMETHASONE TAB [Concomitant]
  3. LAMISIL [Concomitant]

REACTIONS (6)
  - CHILLS [None]
  - DIZZINESS [None]
  - HEAT STROKE [None]
  - HEPATIC FUNCTION ABNORMAL [None]
  - PYREXIA [None]
  - RENAL IMPAIRMENT [None]
